FAERS Safety Report 16676392 (Version 2)
Quarter: 2019Q3

REPORT INFORMATION
  Report Type: Spontaneous
  Country: JP (occurrence: JP)
  Receive Date: 20190807
  Receipt Date: 20190919
  Transmission Date: 20191004
  Serious: Yes (Hospitalization, Other)
  Sender: FDA-Public Use
  Company Number: JP-ROCHE-2346857

PATIENT
  Age: 68 Year
  Sex: Male

DRUGS (1)
  1. LUCENTIS [Suspect]
     Active Substance: RANIBIZUMAB
     Indication: RETINAL VEIN OCCLUSION
     Route: 050
     Dates: end: 201904

REACTIONS (7)
  - Pulmonary valve incompetence [Unknown]
  - Carotid artery stenosis [Unknown]
  - Chest X-ray abnormal [Unknown]
  - Cardiomegaly [Unknown]
  - Embolic stroke [Recovering/Resolving]
  - Tricuspid valve incompetence [Unknown]
  - Carotid intima-media thickness increased [Unknown]

NARRATIVE: CASE EVENT DATE: 20190617
